FAERS Safety Report 18258089 (Version 1)
Quarter: 2020Q3

REPORT INFORMATION
  Report Type: Report from Study
  Country: CA (occurrence: CA)
  Receive Date: 20200911
  Receipt Date: 20200911
  Transmission Date: 20201103
  Serious: Yes (Other)
  Sender: FDA-Public Use
  Company Number: CA-JNJFOC-20200220090

PATIENT
  Age: 15 Year
  Sex: Female
  Weight: 53 kg

DRUGS (1)
  1. REMICADE [Suspect]
     Active Substance: INFLIXIMAB
     Indication: CROHN^S DISEASE
     Route: 042
     Dates: start: 20191024, end: 20200211

REACTIONS (11)
  - Hyperhidrosis [Recovering/Resolving]
  - Infusion related reaction [Recovering/Resolving]
  - Faeces soft [Recovering/Resolving]
  - Product use issue [Unknown]
  - Haematochezia [Recovering/Resolving]
  - Drug level decreased [Unknown]
  - Drug specific antibody present [Unknown]
  - Abdominal pain [Recovered/Resolved]
  - Nausea [Recovered/Resolved]
  - Pallor [Recovering/Resolving]
  - Off label use [Unknown]

NARRATIVE: CASE EVENT DATE: 20200211
